FAERS Safety Report 8304482-4 (Version None)
Quarter: 2012Q2

REPORT INFORMATION
  Report Type: 
  Country: None (occurrence: None)
  Receive Date: 20120423
  Receipt Date: 20120418
  Transmission Date: 20120825
  Serious: Yes (Death)
  Sender: FDA-Public Use
  Company Number: JP-ELI_LILLY_AND_COMPANY-JP201204006168

PATIENT

DRUGS (1)
  1. ALIMTA [Suspect]

REACTIONS (1)
  - INTERSTITIAL LUNG DISEASE [None]
